FAERS Safety Report 7025314-0 (Version None)
Quarter: 2010Q4

REPORT INFORMATION
  Report Type: 
  Country: None (occurrence: None)
  Receive Date: 20101001
  Receipt Date: 20100929
  Transmission Date: 20110411
  Serious: Yes (Death, Life-Threatening, Hospitalization, Other)
  Sender: FDA-Public Use
  Company Number: US-SANOFI-AVENTIS-2009SA000785

PATIENT
  Age: 75 Year
  Sex: Male
  Weight: 68 kg

DRUGS (26)
  1. AFLIBERCEPT [Suspect]
     Indication: PROSTATE CANCER METASTATIC
     Route: 042
     Dates: start: 20091104, end: 20091104
  2. AFLIBERCEPT [Suspect]
     Route: 042
     Dates: start: 20090722, end: 20090722
  3. DOCETAXEL [Suspect]
     Indication: PROSTATE CANCER METASTATIC
     Route: 042
     Dates: start: 20091104, end: 20091104
  4. DOCETAXEL [Suspect]
     Route: 042
     Dates: start: 20090722, end: 20090722
  5. PREDNISONE [Suspect]
     Indication: PROSTATE CANCER METASTATIC
     Route: 048
     Dates: start: 20090722, end: 20091106
  6. ZOLADEX [Concomitant]
     Dates: start: 20020601
  7. HYTRIN [Concomitant]
  8. LIPITOR [Concomitant]
  9. TOPROL-XL [Concomitant]
  10. CALCIUM [Concomitant]
  11. VITAMIN D [Concomitant]
  12. NITRGLYCERIN TRANSDERMAL SYSTEM [Concomitant]
     Dosage: 0.1 MG/HR
  13. XANAX [Concomitant]
     Route: 048
  14. DARVOCET-N 100 [Concomitant]
     Route: 048
  15. LEVAQUIN [Concomitant]
  16. LACTULOSE [Concomitant]
     Dates: start: 20090715
  17. COLACE [Concomitant]
     Dates: start: 20090717
  18. FLEET ENEMA /CAN/ [Concomitant]
     Dates: start: 20090717
  19. BENADRYL [Concomitant]
     Dates: start: 20090722, end: 20091104
  20. PEPCID [Concomitant]
     Dates: start: 20090722, end: 20091104
  21. ALOXI [Concomitant]
     Dates: start: 20090722, end: 20091104
  22. NEULASTA [Concomitant]
     Dates: start: 20090813, end: 20091016
  23. REMERON [Concomitant]
     Dates: start: 20090822
  24. CALCIUM PHOSPHATE [Concomitant]
     Dates: start: 20091023
  25. ALL OTHER THERAPEUTIC PRODUCTS [Concomitant]
     Dates: start: 20091023
  26. IMODIUM [Concomitant]
     Dates: start: 20091101

REACTIONS (5)
  - ACUTE MYOCARDIAL INFARCTION [None]
  - DEATH [None]
  - HYPOTENSION [None]
  - SINUS TACHYCARDIA [None]
  - VENTRICULAR EXTRASYSTOLES [None]
